FAERS Safety Report 5225254-3 (Version None)
Quarter: 2007Q1

REPORT INFORMATION
  Report Type: 
  Country: None (occurrence: None)
  Receive Date: 20070131
  Receipt Date: 20070122
  Transmission Date: 20070707
  Serious: Yes (Hospitalization)
  Sender: FDA-Public Use
  Company Number: US-ROCHE-477853

PATIENT
  Age: 68 Year
  Sex: Male
  Weight: 68 kg

DRUGS (3)
  1. CAPECITABINE [Suspect]
     Dosage: DOSE TAKEN TWICE DAILY FOR 10 DAYS
     Route: 048
     Dates: start: 20061227
  2. OXALIPLATIN [Suspect]
     Dosage: DOSE EQUATES TO 90.5 MG FREQUENCY REPORTED AS DAYS 1 AND 8
     Route: 042
     Dates: start: 20061227
  3. TAXOTERE [Suspect]
     Dosage: FREQUENCY NOT REPORTED
     Route: 065
     Dates: start: 20061227

REACTIONS (3)
  - ABDOMINAL PAIN [None]
  - COLITIS [None]
  - FEBRILE NEUTROPENIA [None]
